FAERS Safety Report 6813775-9 (Version None)
Quarter: 2010Q3

REPORT INFORMATION
  Report Type: 
  Country: None (occurrence: None)
  Receive Date: 20100701
  Receipt Date: 20100608
  Transmission Date: 20110219
  Serious: Yes (Other)
  Sender: FDA-Public Use
  Company Number: FR-B.I. PHARMACEUTICALS,INC./RIDGEFIELD-2010-BP-07419YA

PATIENT
  Sex: Male
  Weight: 63 kg

DRUGS (4)
  1. TAMSULOSIN HCL [Suspect]
     Indication: BENIGN PROSTATIC HYPERPLASIA
     Route: 048
     Dates: start: 20100413, end: 20100607
  2. TAMSULOSIN HCL [Suspect]
     Indication: URINARY TRACT DISORDER
  3. SIMVASTATIN [Concomitant]
     Indication: HYPERCHOLESTEROLAEMIA
     Dosage: 20 MG
     Dates: start: 20050101
  4. NIFEDIPINE [Concomitant]
     Indication: ANGINA PECTORIS
     Dosage: 30 MG
     Dates: start: 20050101

REACTIONS (2)
  - BLINDNESS TRANSIENT [None]
  - EYE DISORDER [None]
